FAERS Safety Report 9018367 (Version 1)
Quarter: 2013Q1

REPORT INFORMATION
  Report Type: Spontaneous
  Country: US (occurrence: None)
  Receive Date: 20130111
  Receipt Date: 20130111
  Transmission Date: 20140127
  Serious: Yes (Other)
  Sender: FDA-Public Use
  Company Number: None

PATIENT
  Age: 43 Year
  Sex: Female
  Weight: 79.38 kg

DRUGS (1)
  1. MIRENA [Suspect]
     Indication: MENORRHAGIA
     Dates: start: 20110111, end: 20120425

REACTIONS (11)
  - Depression [None]
  - Anxiety [None]
  - Feeling abnormal [None]
  - Memory impairment [None]
  - Hypertension [None]
  - Alopecia [None]
  - Insomnia [None]
  - Chest pain [None]
  - Hair growth abnormal [None]
  - Muscle spasms [None]
  - Paraesthesia [None]
